FAERS Safety Report 8932730 (Version 2)
Quarter: 2013Q1

REPORT INFORMATION
  Report Type: Spontaneous
  Country: US (occurrence: US)
  Receive Date: 20121129
  Receipt Date: 20130320
  Transmission Date: 20140127
  Serious: No
  Sender: FDA-Public Use
  Company Number: US-009507513-1211USA011047

PATIENT
  Sex: Male
  Weight: 140.59 kg

DRUGS (12)
  1. NOXAFIL [Suspect]
     Indication: SINUSITIS FUNGAL
     Dosage: 40MG/ML
     Route: 048
     Dates: start: 20130226, end: 20130314
  2. ATENOLOL [Concomitant]
  3. AZELASTINE HYDROCHLORIDE [Concomitant]
  4. DIPHENHYDRAMINE HYDROCHLORIDE [Concomitant]
  5. ERGOCALCIFEROL [Concomitant]
  6. FLAGYL [Concomitant]
  7. METHADONE HYDROCHLORIDE [Concomitant]
  8. NEURONTIN [Concomitant]
  9. NOVOLIN [Concomitant]
  10. SIMVASTIN [Concomitant]
  11. ZOSYN [Concomitant]
  12. ZYVOX [Concomitant]

REACTIONS (1)
  - Anxiety [Recovered/Resolved]
